FAERS Safety Report 9254726 (Version 1)
Quarter: 2013Q2

REPORT INFORMATION
  Report Type: Report from Study
  Country: DK (occurrence: DE)
  Receive Date: 20130425
  Receipt Date: 20130425
  Transmission Date: 20140414
  Serious: Yes (Hospitalization)
  Sender: FDA-Public Use
  Company Number: DE-FRI-1000044595

PATIENT
  Sex: Female

DRUGS (14)
  1. CITALOPRAM [Suspect]
     Dosage: 40 MG
     Route: 048
     Dates: start: 20120206, end: 20130110
  2. SEROQUEL PROLONG [Suspect]
     Dosage: 100 MG
     Route: 048
     Dates: start: 20120714, end: 20120715
  3. SEROQUEL PROLONG [Suspect]
     Dosage: 300 MG
     Route: 048
     Dates: start: 20120716, end: 20120716
  4. SEROQUEL PROLONG [Suspect]
     Dosage: 400 MG
     Route: 048
     Dates: start: 20120717, end: 20120718
  5. SEROQUEL PROLONG [Suspect]
     Dosage: 600 MG
     Route: 048
     Dates: start: 20120719, end: 20120719
  6. SEROQUEL PROLONG [Suspect]
     Dosage: 800 MG
     Route: 048
     Dates: start: 20120720, end: 20120729
  7. SEROQUEL PROLONG [Suspect]
     Dosage: 1200 MG
     Route: 048
     Dates: start: 20120730, end: 20130108
  8. SEROQUEL PROLONG [Suspect]
     Dosage: 800 MG
     Route: 048
     Dates: start: 20130109, end: 20130110
  9. SEROQUEL PROLONG [Suspect]
     Dosage: 600 MG
     Route: 048
     Dates: start: 20130111, end: 20130111
  10. SEROQUEL PROLONG [Suspect]
     Dosage: 400 MG
     Route: 048
     Dates: start: 20130112, end: 20130212
  11. LAMOTRIGIN [Concomitant]
     Dosage: 300 MG
     Route: 048
     Dates: start: 20120713
  12. ELONTRIL [Concomitant]
     Dosage: 150 MG
     Route: 048
     Dates: start: 20120713, end: 20130121
  13. DOMINAL [Concomitant]
     Dosage: 80 MG
     Route: 048
     Dates: start: 20120101, end: 20130121
  14. PANTOZOL [Concomitant]
     Dosage: 20 MG
     Route: 048
     Dates: start: 20120101

REACTIONS (1)
  - Restless legs syndrome [Recovered/Resolved]
